FAERS Safety Report 24538851 (Version 1)
Quarter: 2024Q4

REPORT INFORMATION
  Report Type: Spontaneous
  Country: BR (occurrence: BR)
  Receive Date: 20241023
  Receipt Date: 20241023
  Transmission Date: 20250115
  Serious: Yes (Other)
  Sender: BIOGEN
  Company Number: BR-BIOGEN-2024BI01287168

PATIENT
  Sex: Female
  Weight: 55 kg

DRUGS (1)
  1. TECFIDERA [Suspect]
     Active Substance: DIMETHYL FUMARATE
     Indication: Multiple sclerosis
     Dosage: MAINTENANCE DOSE
     Route: 050
     Dates: end: 202212

REACTIONS (2)
  - Bladder disorder [Unknown]
  - Maternal exposure during pregnancy [Recovered/Resolved]
